FAERS Safety Report 23697507 (Version 2)
Quarter: 2024Q2

REPORT INFORMATION
  Report Type: Spontaneous
  Country: US (occurrence: US)
  Receive Date: 20240402
  Receipt Date: 20240405
  Transmission Date: 20240716
  Serious: No
  Sender: FDA-Public Use
  Company Number: US-ABBVIE-5699578

PATIENT
  Age: 63 Year
  Sex: Female
  Weight: 136 kg

DRUGS (4)
  1. INFED [Suspect]
     Active Substance: IRON DEXTRAN
     Indication: Iron deficiency
     Dosage: FORM STRENGTH: 0.5 MILLILITRE(S)?FREQUENCY TEXT: 1 INJECTION ON BUTTOCKS FOR 10 DAYS
     Route: 030
     Dates: start: 20240322, end: 20240331
  2. INFED [Suspect]
     Active Substance: IRON DEXTRAN
     Indication: Iron deficiency
     Dosage: FORM STRENGTH: 0.5 MILLILITRE(S)
     Route: 030
     Dates: start: 2024
  3. HYDROCHLOROTHIAZIDE [Concomitant]
     Active Substance: HYDROCHLOROTHIAZIDE
     Indication: Oedema
  4. LOSARTAN [Concomitant]
     Active Substance: LOSARTAN
     Indication: Blood pressure measurement

REACTIONS (4)
  - Pain in extremity [Not Recovered/Not Resolved]
  - Unevaluable event [Recovered/Resolved]
  - Contusion [Not Recovered/Not Resolved]
  - Incorrect route of product administration [Recovered/Resolved]

NARRATIVE: CASE EVENT DATE: 20240322
